FAERS Safety Report 10065379 (Version 1)
Quarter: 2014Q2

REPORT INFORMATION
  Report Type: Spontaneous
  Country: US (occurrence: US)
  Receive Date: 20140408
  Receipt Date: 20140408
  Transmission Date: 20141212
  Serious: Yes (Hospitalization)
  Sender: FDA-Public Use
  Company Number: US-GLAXOSMITHKLINE-A1067495A

PATIENT
  Age: 69 Year
  Sex: Female

DRUGS (4)
  1. COREG CR [Suspect]
     Indication: CARDIOMEGALY
     Dosage: 80MG PER DAY
     Route: 048
     Dates: start: 2004
  2. UNKNOWN MEDICATION [Concomitant]
  3. OTHER MEDICATIONS [Concomitant]
  4. VITAMIN [Concomitant]

REACTIONS (3)
  - Dialysis [Unknown]
  - Breast cancer recurrent [Unknown]
  - Mastectomy [Unknown]
